FAERS Safety Report 4599627-6 (Version None)
Quarter: 2005Q1

REPORT INFORMATION
  Report Type: 
  Country: None (occurrence: None)
  Receive Date: 20050303
  Receipt Date: 20040708
  Transmission Date: 20050727
  Serious: Yes (Death)
  Sender: FDA-Public Use
  Company Number: US010944

PATIENT
  Age: 20 Year
  Sex: Female

DRUGS (1)
  1. ACTIQ [Suspect]
     Dosage: 1600 UG BUCCAL
     Route: 002

REACTIONS (1)
  - DRUG ABUSER [None]
